FAERS Safety Report 13596653 (Version 1)
Quarter: 2017Q2

REPORT INFORMATION
  Report Type: Spontaneous
  Country: US (occurrence: US)
  Receive Date: 20170524
  Receipt Date: 20170524
  Transmission Date: 20170830
  Serious: Yes (Other)
  Sender: FDA-Public Use
  Company Number: None

PATIENT
  Age: 58 Year
  Sex: Female
  Weight: 56.75 kg

DRUGS (9)
  1. EYE DROPS [Concomitant]
     Active Substance: UNSPECIFIED INGREDIENT
  2. SINUS RINSE [Concomitant]
     Active Substance: SODIUM BICARBONATE\SODIUM CHLORIDE
  3. CALCIUM [Concomitant]
     Active Substance: CALCIUM
  4. OMEGA 3 [Concomitant]
     Active Substance: OMEGA-3 FATTY ACIDS
  5. ADVANCED CBD OIL WITH TERPENES (FROM HEMP) [Suspect]
     Active Substance: CANNABIDIOL\CANNABIS SATIVA SEED OIL
     Indication: MIGRAINE
     Dosage: 7MG/1ML CBD 1MG/1ML TERPENES 1 DROPPER (1ML) ONCE A DAY MOUTH?
     Route: 048
     Dates: start: 20170125
  6. ADVANCED CBD OIL WITH TERPENES (FROM HEMP) [Suspect]
     Active Substance: CANNABIDIOL\CANNABIS SATIVA SEED OIL
     Indication: HEADACHE
     Dosage: 7MG/1ML CBD 1MG/1ML TERPENES 1 DROPPER (1ML) ONCE A DAY MOUTH?
     Route: 048
     Dates: start: 20170125
  7. ADVANCED CBD OIL WITH TERPENES (FROM HEMP) [Suspect]
     Active Substance: CANNABIDIOL\CANNABIS SATIVA SEED OIL
     Indication: OSTEOPENIA
     Dosage: 7MG/1ML CBD 1MG/1ML TERPENES 1 DROPPER (1ML) ONCE A DAY MOUTH?
     Route: 048
     Dates: start: 20170125
  8. MULTI-VITAMIN [Concomitant]
     Active Substance: .ALPHA.-TOCOPHEROL ACETATE, DL-\ASCORBIC ACID\CYANOCOBALAMIN\FLUORIDE ION\FOLIC ACID\NIACIN\PYRIDOXINE\RIBOFLAVIN\THIAMINE\VITAMIN A\VITAMIN D
  9. VITAMIN D [Concomitant]
     Active Substance: CHOLECALCIFEROL

REACTIONS (2)
  - Product taste abnormal [None]
  - Vomiting [None]

NARRATIVE: CASE EVENT DATE: 20170125
